FAERS Safety Report 18752219 (Version 1)
Quarter: 2021Q1

REPORT INFORMATION
  Report Type: Spontaneous
  Country: US (occurrence: US)
  Receive Date: 20210118
  Receipt Date: 20210118
  Transmission Date: 20210419
  Serious: No
  Sender: FDA-Public Use
  Company Number: US-FOUNDATIONCONSUMERHC-2020-US-021933

PATIENT
  Age: 25 Year
  Sex: Female
  Weight: 58.97 kg

DRUGS (1)
  1. PLAN B ONE?STEP [Suspect]
     Active Substance: LEVONORGESTREL
     Indication: CONTRACEPTION
     Dosage: 1.5MG X UNSPECIFIED NUMBER OF DOSES
     Route: 048
     Dates: end: 20201020

REACTIONS (5)
  - Product use in unapproved indication [Recovered/Resolved]
  - Dysmenorrhoea [Recovered/Resolved]
  - Intentional product misuse [Recovered/Resolved]
  - Vaginal haemorrhage [Recovered/Resolved]
  - Nausea [Recovered/Resolved]

NARRATIVE: CASE EVENT DATE: 20201020
